FAERS Safety Report 5094114-3 (Version None)
Quarter: 2006Q3

REPORT INFORMATION
  Report Type: 
  Country: None (occurrence: None)
  Receive Date: 20060831
  Receipt Date: 20060720
  Transmission Date: 20061208
  Serious: Yes (Life-Threatening, Hospitalization, Disabling, Other)
  Sender: FDA-Public Use
  Company Number: US-MERCK-0607USA04165

PATIENT
  Age: 33 Year
  Sex: Male
  Weight: 91 kg

DRUGS (7)
  1. VYTORIN [Suspect]
     Indication: HYPERLIPIDAEMIA
     Route: 048
     Dates: start: 20060201, end: 20060609
  2. ASPIRIN [Concomitant]
     Route: 065
     Dates: start: 20050101
  3. VITAMINS (UNSPECIFIED) [Concomitant]
     Route: 065
     Dates: start: 20050101
  4. CITRICAL [Concomitant]
     Route: 065
     Dates: start: 20050101
  5. OMEGA-3 [Concomitant]
     Route: 065
     Dates: start: 20050101
  6. VICODIN [Suspect]
     Route: 065
     Dates: start: 20040301, end: 20060610
  7. FLEXERIL [Suspect]
     Route: 048
     Dates: start: 20040301, end: 20060610

REACTIONS (3)
  - DRUG INTERACTION [None]
  - GRAND MAL CONVULSION [None]
  - RHABDOMYOLYSIS [None]
